FAERS Safety Report 6339060-X (Version None)
Quarter: 2009Q3

REPORT INFORMATION
  Report Type: 
  Country: None (occurrence: None)
  Receive Date: 20090903
  Receipt Date: 20090828
  Transmission Date: 20100115
  Serious: Yes (Death)
  Sender: FDA-Public Use
  Company Number: CA-ROCHE-653214

PATIENT
  Sex: Female
  Weight: 74.4 kg

DRUGS (1)
  1. CAPECITABINE [Suspect]
     Dosage: FOR FOURTEEN DAYS, FREQUENCY ODX14 DAYS
     Route: 048
     Dates: start: 20090703, end: 20090818

REACTIONS (1)
  - DEATH [None]
